FAERS Safety Report 12633751 (Version 3)
Quarter: 2016Q3

REPORT INFORMATION
  Report Type: Spontaneous
  Country: JP (occurrence: JP)
  Receive Date: 20160808
  Receipt Date: 20160901
  Transmission Date: 20161109
  Serious: Yes (Hospitalization, Other)
  Sender: FDA-Public Use
  Company Number: JP-BAYER-2016-146801

PATIENT
  Age: 41 Year
  Sex: Female
  Weight: 72 kg

DRUGS (3)
  1. HEPARIN CALCIUM [Concomitant]
     Active Substance: HEPARIN CALCIUM
     Dosage: UNK
     Dates: start: 20141121, end: 20150519
  2. BAYASPIRIN [Suspect]
     Active Substance: ASPIRIN
     Indication: FACTOR XII DEFICIENCY
  3. BAYASPIRIN [Suspect]
     Active Substance: ASPIRIN
     Indication: INFERTILITY
     Dosage: 100 MG, QD
     Route: 048
     Dates: end: 20150603

REACTIONS (14)
  - Seizure [Recovering/Resolving]
  - Uterine rupture [Recovering/Resolving]
  - Hypertensive nephropathy [Recovering/Resolving]
  - Loss of consciousness [Recovering/Resolving]
  - Subcutaneous haematoma [Recovering/Resolving]
  - Syncope [Recovered/Resolved]
  - Foetal distress syndrome [Recovered/Resolved]
  - Nonreassuring foetal heart rate pattern [None]
  - Pre-eclampsia [Recovered/Resolved]
  - Gestational hypertension [Recovering/Resolving]
  - Clonic convulsion [Recovering/Resolving]
  - Bradycardia foetal [Recovered/Resolved]
  - Maternal exposure during pregnancy [Recovered/Resolved]
  - Off label use [None]

NARRATIVE: CASE EVENT DATE: 20150604
